FAERS Safety Report 5626324-8 (Version None)
Quarter: 2008Q1

REPORT INFORMATION
  Report Type: 
  Country: None (occurrence: None)
  Receive Date: 20080213
  Receipt Date: 20080213
  Transmission Date: 20080703
  Serious: Yes (Other)
  Sender: FDA-Public Use
  Company Number: None

PATIENT
  Age: 75 Year
  Sex: Male
  Weight: 77.5651 kg

DRUGS (2)
  1. SIMVASTATIN [Suspect]
     Dosage: 20 DAILY HS PO
     Route: 048
     Dates: start: 20070807
  2. ZETIA [Suspect]
     Dosage: 10 DAILY PO
     Route: 048
     Dates: start: 20070807

REACTIONS (2)
  - HEADACHE [None]
  - MYALGIA [None]
